FAERS Safety Report 24123988 (Version 1)
Quarter: 2024Q3

REPORT INFORMATION
  Report Type: Spontaneous
  Country: US (occurrence: US)
  Receive Date: 20240723
  Receipt Date: 20240723
  Transmission Date: 20241017
  Serious: Yes (Hospitalization)
  Sender: HIKMA
  Company Number: US-MLMSERVICE-20240710-PI120627-00177-1

PATIENT
  Age: 16 Year
  Sex: Female

DRUGS (8)
  1. CISPLATIN [Concomitant]
     Active Substance: CISPLATIN
     Indication: Adrenocortical carcinoma
     Dosage: UNKNOWN
     Route: 065
  2. DOXORUBICIN [Concomitant]
     Active Substance: DOXORUBICIN
     Indication: Adrenocortical carcinoma
     Dosage: UNKNOWN
     Route: 065
  3. ETOPOSIDE [Concomitant]
     Active Substance: ETOPOSIDE
     Indication: Adrenocortical carcinoma
     Dosage: UNKNOWN
     Route: 065
  4. FLUDROCORTISONE [Interacting]
     Active Substance: FLUDROCORTISONE
     Indication: Steroid therapy
     Dosage: 0.1 MILLIGRAM, QD
     Route: 065
  5. HYDROCORTISONE [Interacting]
     Active Substance: HYDROCORTISONE\HYDROCORTISONE ACETATE
     Indication: Steroid therapy
     Dosage: 15 MILLIGRAM, Q8H, YELLOW ZONE
     Route: 065
  6. HYDROCORTISONE [Interacting]
     Active Substance: HYDROCORTISONE\HYDROCORTISONE ACETATE
     Dosage: 5 MILLIGRAM, Q8H, GREEN ZONE
     Route: 065
  7. HYDROCORTISONE [Interacting]
     Active Substance: HYDROCORTISONE\HYDROCORTISONE ACETATE
     Indication: Steroid therapy
     Dosage: 100 MILLIGRAM, Q8H, RED ZONE
     Route: 042
  8. MITOTANE [Interacting]
     Active Substance: MITOTANE
     Indication: Adrenocortical carcinoma
     Dosage: UNKNOWN
     Route: 065

REACTIONS (3)
  - Hypotension [Unknown]
  - Adrenocortical insufficiency acute [Unknown]
  - Drug interaction [Unknown]
